FAERS Safety Report 4973505-2 (Version None)
Quarter: 2006Q2

REPORT INFORMATION
  Report Type: 
  Country: None (occurrence: None)
  Receive Date: 20060414
  Receipt Date: 20060330
  Transmission Date: 20061013
  Serious: Yes (Hospitalization)
  Sender: FDA-Public Use
  Company Number: CA-AMGEN-US156593

PATIENT
  Sex: Female

DRUGS (13)
  1. PALIFERMIN [Suspect]
     Indication: STOMATITIS
     Route: 042
     Dates: start: 20050923
  2. CISPLATIN [Suspect]
     Route: 065
     Dates: start: 20050926
  3. DURAGESIC-100 [Concomitant]
     Route: 065
  4. MORPHINE [Concomitant]
     Route: 065
  5. LOSEC [Concomitant]
     Route: 048
     Dates: start: 20050919
  6. COLACE [Concomitant]
     Route: 050
     Dates: start: 20050919
  7. SENOKOT [Concomitant]
     Route: 050
     Dates: start: 20050919
  8. IRON [Concomitant]
     Route: 050
     Dates: start: 20050919, end: 20051121
  9. DIFLUCAN [Concomitant]
     Route: 048
     Dates: start: 20051121, end: 20051201
  10. NAPROXEN [Concomitant]
     Route: 050
     Dates: start: 20051101, end: 20051111
  11. LIDOCAINE [Concomitant]
     Route: 061
     Dates: start: 20051102, end: 20051116
  12. CLAVULIN [Concomitant]
     Route: 048
     Dates: start: 20051205, end: 20051214
  13. NEUPOGEN [Concomitant]
     Indication: NEUTROPENIA
     Route: 058
     Dates: start: 20051111, end: 20051115

REACTIONS (2)
  - FEBRILE NEUTROPENIA [None]
  - STAPHYLOCOCCAL INFECTION [None]
